FAERS Safety Report 6887382-6 (Version None)
Quarter: 2010Q3

REPORT INFORMATION
  Report Type: 
  Country: None (occurrence: None)
  Receive Date: 20100730
  Receipt Date: 20091222
  Transmission Date: 20110219
  Serious: No
  Sender: FDA-Public Use
  Company Number: A0836429A

PATIENT
  Age: 37 Year
  Sex: Female

DRUGS (3)
  1. IMITREX [Suspect]
     Indication: MIGRAINE
     Dosage: 100MG AS REQUIRED
     Route: 048
     Dates: start: 20080601
  2. SUMATRIPTAN [Suspect]
     Indication: MIGRAINE
     Route: 048
  3. UNKNOWN ANTIDEPRESSANT [Concomitant]

REACTIONS (7)
  - BLOOD IRON DECREASED [None]
  - FLUID RETENTION [None]
  - OEDEMA PERIPHERAL [None]
  - PAIN IN EXTREMITY [None]
  - PARAESTHESIA [None]
  - ULCER [None]
  - VASODILATATION [None]
